FAERS Safety Report 7958175-3 (Version None)
Quarter: 2011Q4

REPORT INFORMATION
  Report Type: 
  Country: None (occurrence: None)
  Receive Date: 20111205
  Receipt Date: 20111201
  Transmission Date: 20120403
  Serious: Yes (Life-Threatening, Hospitalization)
  Sender: FDA-Public Use
  Company Number: JP-ASTRAZENECA-2011SE54155

PATIENT
  Age: 66 Year
  Sex: Male
  Weight: 69 kg

DRUGS (11)
  1. GEFITINIB [Suspect]
     Indication: LUNG ADENOCARCINOMA
     Route: 048
     Dates: start: 20110818, end: 20110903
  2. NORVASC [Concomitant]
     Indication: HYPERTENSION
     Route: 048
  3. HUMALOG [Concomitant]
     Indication: DIABETES MELLITUS
     Dosage: 8-8-6 IU THREE TIME A DAY
     Route: 058
  4. PREDNISOLONE [Concomitant]
     Indication: TUMOUR ASSOCIATED FEVER
     Route: 048
     Dates: start: 20090817
  5. AMOBAN [Concomitant]
     Indication: INSOMNIA
     Route: 048
  6. GEFITINIB [Suspect]
     Indication: NON-SMALL CELL LUNG CANCER STAGE IIIB
     Route: 048
     Dates: start: 20110818, end: 20110903
  7. ALDACTONE [Concomitant]
     Indication: CIRRHOSIS ALCOHOLIC
     Route: 048
  8. URSO 250 [Concomitant]
     Indication: CIRRHOSIS ALCOHOLIC
     Route: 048
  9. OMEPRAZOLE [Concomitant]
     Indication: GASTRITIS
     Route: 048
  10. AMINOLEBAN EN [Concomitant]
     Indication: CIRRHOSIS ALCOHOLIC
     Route: 048
  11. LANTUS [Concomitant]
     Indication: DIABETES MELLITUS
     Route: 058

REACTIONS (2)
  - INTERSTITIAL LUNG DISEASE [None]
  - LUNG DISORDER [None]
